FAERS Safety Report 7462180-3 (Version None)
Quarter: 2011Q2

REPORT INFORMATION
  Report Type: 
  Country: None (occurrence: None)
  Receive Date: 20110506
  Receipt Date: 20110425
  Transmission Date: 20111010
  Serious: Yes (Hospitalization)
  Sender: FDA-Public Use
  Company Number: GB-SANOFI-AVENTIS-2011SA026259

PATIENT
  Age: 5 Year

DRUGS (8)
  1. ERYTHROMYCIN [Suspect]
     Route: 065
  2. PHENYTOIN [Suspect]
     Indication: STATUS EPILEPTICUS
     Route: 065
  3. CLOBAZAM [Concomitant]
     Route: 065
  4. LAMOTRIGINE [Suspect]
     Route: 065
  5. GENTAMICIN [Suspect]
     Route: 065
  6. VALPROATE SODIUM [Concomitant]
     Route: 065
  7. CEFOTAXIME [Suspect]
     Route: 065
  8. TAZOCIN [Suspect]
     Route: 065

REACTIONS (9)
  - STATUS EPILEPTICUS [None]
  - AKINESIA [None]
  - COGNITIVE DISORDER [None]
  - LEARNING DISORDER [None]
  - APHASIA [None]
  - MOVEMENT DISORDER [None]
  - BRAIN OEDEMA [None]
  - DYSTONIA [None]
  - HYPOTONIA [None]
